FAERS Safety Report 7599235-9 (Version None)
Quarter: 2011Q3

REPORT INFORMATION
  Report Type: 
  Country: None (occurrence: None)
  Receive Date: 20110711
  Receipt Date: 20110629
  Transmission Date: 20111222
  Serious: Yes (Life-Threatening)
  Sender: FDA-Public Use
  Company Number: TR-BAYER-2011-051428

PATIENT
  Age: 60 Year
  Sex: Male

DRUGS (2)
  1. ANTIHYPERTENSIVES [Concomitant]
     Indication: HYPERTENSION
  2. CIPROFLOXACIN [Suspect]
     Indication: PROPHYLAXIS URINARY TRACT INFECTION

REACTIONS (11)
  - UROSEPSIS [None]
  - FATIGUE [None]
  - PLATELET COUNT DECREASED [None]
  - PATHOGEN RESISTANCE [None]
  - PYREXIA [None]
  - NAUSEA [None]
  - HEART RATE INCREASED [None]
  - BLOOD PRESSURE DECREASED [None]
  - RESPIRATORY RATE INCREASED [None]
  - DYSURIA [None]
  - ESCHERICHIA TEST POSITIVE [None]
